FAERS Safety Report 6927748-9 (Version None)
Quarter: 2010Q3

REPORT INFORMATION
  Report Type: 
  Country: None (occurrence: None)
  Receive Date: 20100812
  Receipt Date: 20100721
  Transmission Date: 20110219
  Serious: Yes (Hospitalization)
  Sender: FDA-Public Use
  Company Number: 15204126

PATIENT
  Age: 12 Year
  Sex: Female

DRUGS (5)
  1. SPRYCEL [Suspect]
     Indication: B PRECURSOR TYPE ACUTE LEUKAEMIA
     Dosage: 1540 MILLIGRAM TOTAL ORAL
     Route: 048
     Dates: start: 20100406, end: 20100419
  2. DAUNORUBICIN HCL [Suspect]
     Indication: B PRECURSOR TYPE ACUTE LEUKAEMIA
     Dosage: 188 MILLIGRAM TOTAL IV
     Route: 042
     Dates: start: 20100406, end: 20100414
  3. PEG-L-ASPARAGINASE (PEGASPARGASE) [Suspect]
     Indication: B PRECURSOR TYPE ACUTE LEUKAEMIA
     Dosage: 4750 INTERNATIONAL UNIT TOTAL IM
     Route: 030
     Dates: start: 20100326, end: 20100326
  4. PREDNISONE [Suspect]
     Indication: B PRECURSOR TYPE ACUTE LEUKAEMIA
     Dosage: 2484 MILLIGRAM TOTAL ORAL
     Route: 048
     Dates: start: 20100406, end: 20100419
  5. VINCRISTINE SULFATE [Suspect]
     Indication: B PRECURSOR TYPE ACUTE LEUKAEMIA
     Dosage: 8 MILLIGRAM IV
     Route: 042
     Dates: start: 20100406, end: 20100413

REACTIONS (10)
  - ABDOMINAL PAIN [None]
  - BLOOD ALBUMIN DECREASED [None]
  - BLOOD GLUCOSE INCREASED [None]
  - DIARRHOEA [None]
  - DIZZINESS [None]
  - HYPOCALCAEMIA [None]
  - HYPONATRAEMIA [None]
  - HYPOPHOSPHATAEMIA [None]
  - HYPOTENSION [None]
  - PYREXIA [None]
